FAERS Safety Report 8583226-5 (Version None)
Quarter: 2012Q3

REPORT INFORMATION
  Report Type: 
  Country: None (occurrence: None)
  Receive Date: 20120809
  Receipt Date: 20120730
  Transmission Date: 20120928
  Serious: Yes (Hospitalization)
  Sender: FDA-Public Use
  Company Number: US-ACTELION-A-NJ2011-46938

PATIENT
  Age: 51 Year
  Sex: Female

DRUGS (2)
  1. TRACLEER [Suspect]
     Indication: PULMONARY ARTERIAL HYPERTENSION
     Dosage: UNK
     Route: 048
  2. REVATIO [Concomitant]

REACTIONS (6)
  - OEDEMA [None]
  - MALNUTRITION [None]
  - CARDIAC FAILURE CONGESTIVE [None]
  - HERNIA [None]
  - DYSPNOEA [None]
  - CLOSTRIDIUM DIFFICILE COLITIS [None]
